FAERS Safety Report 18680075 (Version 1)
Quarter: 2020Q4

REPORT INFORMATION
  Report Type: Report from Study
  Country: PK (occurrence: PK)
  Receive Date: 20201229
  Receipt Date: 20201229
  Transmission Date: 20210114
  Serious: Yes (Death)
  Sender: FDA-Public Use
  Company Number: NVSC2020PK344624

PATIENT
  Sex: Female
  Weight: 70 kg

DRUGS (1)
  1. AFINITOR [Suspect]
     Active Substance: EVEROLIMUS
     Indication: BREAST CANCER
     Dosage: 10 MG, QD
     Route: 048
     Dates: start: 20200214, end: 20200820

REACTIONS (4)
  - Renal failure [Fatal]
  - Ventricular failure [Fatal]
  - Malignant neoplasm progression [Fatal]
  - Breast cancer [Fatal]
